FAERS Safety Report 10577037 (Version 1)
Quarter: 2014Q4

REPORT INFORMATION
  Report Type: Report from Study
  Country: CO (occurrence: CO)
  Receive Date: 20141111
  Receipt Date: 20141111
  Transmission Date: 20150529
  Serious: Yes (Hospitalization)
  Sender: FDA-Public Use
  Company Number: CO-ABBVIE-14K-036-1306159-00

PATIENT
  Age: 59 Year
  Sex: Male
  Weight: 78 kg

DRUGS (2)
  1. HUMIRA [Suspect]
     Active Substance: ADALIMUMAB
     Indication: ANKYLOSING SPONDYLITIS
     Route: 058
     Dates: start: 20130323, end: 20141009
  2. PREGABALIN. [Concomitant]
     Active Substance: PREGABALIN
     Indication: PRODUCT USED FOR UNKNOWN INDICATION

REACTIONS (5)
  - Cardiac failure [Recovering/Resolving]
  - Pulmonary hypertension [Recovering/Resolving]
  - Respiratory distress [Recovering/Resolving]
  - Ejection fraction decreased [Recovering/Resolving]
  - Congestive cardiomyopathy [Recovering/Resolving]

NARRATIVE: CASE EVENT DATE: 20141022
